FAERS Safety Report 12120353 (Version 5)
Quarter: 2016Q2

REPORT INFORMATION
  Report Type: Report from Study
  Country: PL (occurrence: PL)
  Receive Date: 20160226
  Receipt Date: 20160527
  Transmission Date: 20160815
  Serious: Yes (Death)
  Sender: FDA-Public Use
  Company Number: PL-AMGEN-POLCT2016024550

PATIENT
  Age: 47 Year
  Sex: Male

DRUGS (14)
  1. PRESTARIUM [Concomitant]
     Active Substance: PERINDOPRIL
     Dosage: 5 MG, UNK
     Route: 048
     Dates: start: 20160201, end: 20160223
  2. OMEPRAZOLUM [Concomitant]
     Dosage: 20 MG, UNK
     Route: 048
     Dates: start: 20160215, end: 20160215
  3. DEXAMETHASONE. [Suspect]
     Active Substance: DEXAMETHASONE
     Indication: PLASMA CELL MYELOMA
     Dosage: 40 MG, PER CHEMO REGIM
     Route: 048
     Dates: start: 20160111, end: 20160222
  4. MILURIT [Concomitant]
     Active Substance: ALLOPURINOL
     Dosage: 100 MG, UNK
     Route: 048
     Dates: start: 20160111, end: 20160223
  5. VITRUM CALCIUM [Concomitant]
     Dosage: 1000 MG, UNK
     Route: 048
     Dates: start: 20160111, end: 20160223
  6. CARFILZOMIB [Suspect]
     Active Substance: CARFILZOMIB
     Indication: PLASMA CELL MYELOMA
     Dosage: 147 MG, PER CHEMO REGIM
     Route: 042
     Dates: start: 20160111, end: 20160222
  7. VITAMIN B6 [Concomitant]
     Active Substance: PYRIDOXINE HYDROCHLORIDE
     Dosage: 50 MG, UNK
     Route: 048
     Dates: start: 20160111, end: 20160223
  8. PARACETAMOL [Concomitant]
     Active Substance: ACETAMINOPHEN
     Dosage: 1 G, UNK
     Route: 048
     Dates: start: 20160222, end: 20160222
  9. HEVIRAN [Concomitant]
     Active Substance: ACYCLOVIR
     Dosage: 400 MG, UNK
     Route: 048
     Dates: start: 20160111, end: 20160223
  10. CONTROLOC [Concomitant]
     Active Substance: PANTOPRAZOLE SODIUM
     Dosage: 20 MG, UNK
     Route: 048
     Dates: start: 20160111, end: 20160223
  11. HEPATIL [Concomitant]
     Dosage: 2 UNK, UNK
     Route: 048
     Dates: start: 20160111, end: 20160222
  12. ONDANSETRON [Concomitant]
     Active Substance: ONDANSETRON
     Dosage: 8 MG, UNK
     Route: 042
     Dates: start: 20160208, end: 20160222
  13. ACIDUM ZOLEDRONICUM [Concomitant]
     Dosage: 4 MG, UNK
     Route: 042
     Dates: start: 20151221, end: 20160208
  14. NACL [Concomitant]
     Active Substance: SODIUM CHLORIDE
     Dosage: 500 ML, UNK
     Route: 042
     Dates: start: 20160208, end: 20160222

REACTIONS (1)
  - Sudden cardiac death [Fatal]

NARRATIVE: CASE EVENT DATE: 20160223
